FAERS Safety Report 4551279-7 (Version None)
Quarter: 2005Q1

REPORT INFORMATION
  Report Type: 
  Country: None (occurrence: None)
  Receive Date: 20050110
  Receipt Date: 20050104
  Transmission Date: 20050727
  Serious: Yes (Hospitalization, Other)
  Sender: FDA-Public Use
  Company Number: FRWYE312704JAN05

PATIENT
  Age: 48 Year
  Sex: Female

DRUGS (3)
  1. EFFEXOR XR [Suspect]
     Dosage: 37.5 MG 2X PER 1 DAY
     Route: 048
     Dates: start: 20041010, end: 20041125
  2. CLONAZEPAM [Suspect]
     Route: 048
     Dates: start: 20041112, end: 20041119
  3. TEGRETOL [Suspect]
     Dosage: 200 MG 2X PER 1 DAY
     Route: 048
     Dates: start: 20041010, end: 20041125

REACTIONS (8)
  - ALANINE AMINOTRANSFERASE INCREASED [None]
  - ANGIONEUROTIC OEDEMA [None]
  - ASPARTATE AMINOTRANSFERASE INCREASED [None]
  - DRUG RASH WITH EOSINOPHILIA AND SYSTEMIC SYMPTOMS [None]
  - EOSINOPHILIA [None]
  - LYMPHADENOPATHY [None]
  - PYREXIA [None]
  - URTICARIA [None]
